FAERS Safety Report 5893709-4 (Version None)
Quarter: 2008Q3

REPORT INFORMATION
  Report Type: 
  Country: None (occurrence: None)
  Receive Date: 20080923
  Receipt Date: 20080911
  Transmission Date: 20090109
  Serious: Yes (Life-Threatening)
  Sender: FDA-Public Use
  Company Number: JP-SANOFI-SYNTHELABO-F01200701613

PATIENT
  Sex: Male
  Weight: 56 kg

DRUGS (23)
  1. MAGMITT [Concomitant]
     Route: 048
     Dates: start: 20070403
  2. WARFARIN SODIUM [Concomitant]
     Dosage: 1 MG
     Route: 048
     Dates: start: 20070320, end: 20070326
  3. WARFARIN SODIUM [Concomitant]
     Dosage: 2 MG
     Route: 048
     Dates: start: 20070327, end: 20070814
  4. LEVOTHYROXINE SODIUM [Suspect]
     Dosage: 25 MCG
     Route: 048
     Dates: start: 20061205
  5. RABEPRAZOLE SODIUM [Concomitant]
     Indication: CHEST DISCOMFORT
     Dosage: 10 MG
     Route: 048
     Dates: start: 20070424
  6. BULKOSE [Concomitant]
     Route: 048
     Dates: start: 20070403, end: 20070410
  7. SPIRIVA [Concomitant]
     Dosage: 18 MCG
     Route: 055
     Dates: start: 20070227
  8. FLUTIDE [Concomitant]
     Route: 055
     Dates: start: 20070213, end: 20070709
  9. SEREVENT [Concomitant]
     Route: 055
     Dates: start: 20070213, end: 20070709
  10. MEILAX [Concomitant]
     Dosage: 2 MG
     Route: 048
     Dates: start: 20070116, end: 20070226
  11. CARDENALIN [Concomitant]
     Indication: HYPERTENSION
     Dosage: 2 MG
     Route: 048
     Dates: start: 20070327, end: 20070507
  12. CARDENALIN [Concomitant]
     Dosage: 4 MG
     Route: 048
     Dates: start: 20070508, end: 20070517
  13. DIOVAN [Concomitant]
     Indication: HYPERTENSION
     Dosage: 80 MG
     Route: 048
     Dates: start: 20070303, end: 20070402
  14. COVERSYL [Concomitant]
     Indication: HYPERTENSION
     Route: 048
     Dates: start: 20061212, end: 20070326
  15. COVERSYL [Concomitant]
     Dosage: 4 MG
     Route: 065
     Dates: start: 20070712
  16. NORVASC [Concomitant]
     Indication: HYPERTENSION
     Route: 048
     Dates: start: 20061212, end: 20070402
  17. NORVASC [Concomitant]
     Dosage: 5 MG
     Route: 048
     Dates: start: 20070403
  18. NORVASC [Concomitant]
     Route: 065
     Dates: start: 20070515
  19. RENAGEL [Concomitant]
     Route: 048
     Dates: start: 20070116, end: 20070424
  20. RENAGEL [Concomitant]
     Route: 048
     Dates: start: 20070515, end: 20070711
  21. RENAGEL [Concomitant]
     Route: 048
     Dates: start: 20070712
  22. CLOPIDOGREL [Suspect]
     Indication: CEREBRAL ISCHAEMIA
     Route: 048
     Dates: start: 20070116, end: 20070814
  23. SALMETEROL XINAFOATE [Concomitant]
     Route: 065
     Dates: start: 20070710

REACTIONS (2)
  - RENAL CANCER [None]
  - VENTRICULAR TACHYCARDIA [None]
